FAERS Safety Report 11521137 (Version 1)
Quarter: 2015Q3

REPORT INFORMATION
  Report Type: Spontaneous
  Country: US (occurrence: US)
  Receive Date: 20150918
  Receipt Date: 20150918
  Transmission Date: 20151125
  Serious: No
  Sender: FDA-Public Use
  Company Number: US-ROCHE-720746

PATIENT
  Age: 48 Year
  Sex: Female

DRUGS (2)
  1. RIBAVIRIN. [Suspect]
     Active Substance: RIBAVIRIN
     Indication: HEPATITIS C
     Dosage: DIVIDED DOSES
     Route: 065
  2. PEGASYS [Suspect]
     Active Substance: PEGINTERFERON ALFA-2A
     Indication: HEPATITIS C
     Dosage: FORM: PFS
     Route: 065

REACTIONS (10)
  - Pollakiuria [Unknown]
  - Nausea [Not Recovered/Not Resolved]
  - Epistaxis [Unknown]
  - Chromaturia [Unknown]
  - Thrombosis [Unknown]
  - Hypersensitivity [Unknown]
  - Pain in extremity [Unknown]
  - Fibromyalgia [Unknown]
  - Confusional state [Unknown]
  - Contusion [Unknown]

NARRATIVE: CASE EVENT DATE: 20100726
